FAERS Safety Report 4490736-9 (Version None)
Quarter: 2004Q4

REPORT INFORMATION
  Report Type: 
  Country: None (occurrence: None)
  Receive Date: 20041029
  Receipt Date: 20041015
  Transmission Date: 20050328
  Serious: No
  Sender: FDA-Public Use
  Company Number: E-04-030

PATIENT
  Sex: Male

DRUGS (3)
  1. HYDROCODONE BITARTRATE AND ACETAMINOPHEN [Suspect]
     Indication: ANALGESIC EFFECT
     Dosage: SEE IMAGE
     Dates: start: 20041001
  2. CLINDAMYCIN HCL [Concomitant]
  3. METRONIDAZOLE [Concomitant]

REACTIONS (5)
  - ABDOMINAL DISTENSION [None]
  - DYSPHAGIA [None]
  - HAEMATOCHEZIA [None]
  - NAUSEA [None]
  - RASH [None]
